FAERS Safety Report 9903219 (Version 3)
Quarter: 2014Q4

REPORT INFORMATION
  Report Type: Spontaneous
  Country: GB (occurrence: GB)
  Receive Date: 20140217
  Receipt Date: 20141010
  Transmission Date: 20150529
  Serious: Yes (Hospitalization, Other)
  Sender: FDA-Public Use
  Company Number: PHFR2014GB001561

PATIENT
  Age: 29 Year
  Sex: Male

DRUGS (1)
  1. CLOZARIL [Suspect]
     Active Substance: CLOZAPINE
     Indication: SCHIZOPHRENIA
     Dosage: UKN
     Route: 048
     Dates: start: 20070907

REACTIONS (4)
  - Neutrophil count increased [Unknown]
  - White blood cell count increased [Not Recovered/Not Resolved]
  - Schizophrenia [Unknown]
  - Mental impairment [Unknown]

NARRATIVE: CASE EVENT DATE: 20140707
